FAERS Safety Report 4432960-7 (Version None)
Quarter: 2004Q3

REPORT INFORMATION
  Report Type: 
  Country: None (occurrence: None)
  Receive Date: 20040823
  Receipt Date: 20040810
  Transmission Date: 20050211
  Serious: Yes (Hospitalization)
  Sender: FDA-Public Use
  Company Number: 2004IC000587

PATIENT
  Age: 51 Year
  Sex: Female

DRUGS (2)
  1. FLUOROURACIL [Suspect]
     Indication: GLAUCOMA
     Dosage: SEE IMAGE
     Route: 057
  2. FLUOROURACIL [Suspect]
     Indication: GLAUCOMA
     Dosage: SEE IMAGE
     Route: 057

REACTIONS (14)
  - ANTERIOR CHAMBER DISORDER [None]
  - CONJUNCTIVAL BLEB [None]
  - CONJUNCTIVAL HYPERAEMIA [None]
  - ECTROPION [None]
  - EYE DISCHARGE [None]
  - GLAUCOMATOUS OPTIC DISC ATROPHY [None]
  - INFECTION [None]
  - INTRAOCULAR PRESSURE INCREASED [None]
  - IRIS COLOBOMA [None]
  - LACRIMATION INCREASED [None]
  - LENS DISORDER [None]
  - POSTERIOR CAPSULE OPACIFICATION [None]
  - PUNCTATE KERATITIS [None]
  - VISUAL ACUITY REDUCED [None]
